FAERS Safety Report 6875018-X (Version None)
Quarter: 2010Q2

REPORT INFORMATION
  Report Type: 
  Country: None (occurrence: None)
  Receive Date: 20100616
  Receipt Date: 20080115
  Transmission Date: 20101027
  Serious: Yes (Hospitalization)
  Sender: FDA-Public Use
  Company Number: S07-USA-03808-01

PATIENT
  Age: 86 Year
  Sex: Female
  Weight: 79.3795 kg

DRUGS (3)
  1. NAMENDA [Suspect]
     Indication: DEMENTIA
     Dosage: 5 MG (5 MG,ONCE A DAY),ORAL
     Route: 048
     Dates: start: 20070821, end: 20070823
  2. CELEXA [Concomitant]
  3. ZYPREXA ZYDIS [Concomitant]

REACTIONS (1)
  - CARDIAC ARREST [None]
